FAERS Safety Report 12256838 (Version 1)
Quarter: 2016Q2

REPORT INFORMATION
  Report Type: Spontaneous
  Country: US (occurrence: None)
  Receive Date: 20160411
  Receipt Date: 20160411
  Transmission Date: 20160815
  Serious: Yes (Life-Threatening, Hospitalization)
  Sender: FDA-Public Use
  Company Number: None

PATIENT
  Age: 27 Year
  Sex: Female
  Weight: 102.3 kg

DRUGS (1)
  1. ETONOGESTREL/ETHINYL ESTRADIOL, 0.120 MG/ 0.015MG MERCK [Suspect]
     Active Substance: ETHINYL ESTRADIOL\ETONOGESTREL
     Indication: CONTRACEPTION
     Route: 067

REACTIONS (8)
  - Oropharyngeal pain [None]
  - Cough [None]
  - Subdural haematoma [None]
  - Pulmonary embolism [None]
  - Coagulopathy [None]
  - Viral infection [None]
  - Cerebellar haematoma [None]
  - Cardiac arrest [None]

NARRATIVE: CASE EVENT DATE: 20160210
